FAERS Safety Report 8559185-8 (Version None)
Quarter: 2012Q3

REPORT INFORMATION
  Report Type: 
  Country: None (occurrence: None)
  Receive Date: 20120802
  Receipt Date: 20120730
  Transmission Date: 20120928
  Serious: Yes (Other)
  Sender: FDA-Public Use
  Company Number: US-AMGEN-USASP2012047505

PATIENT
  Sex: Female

DRUGS (1)
  1. ENBREL [Suspect]
     Indication: PSORIATIC ARTHROPATHY
     Dosage: 50 MG, QWK
     Dates: start: 20020801

REACTIONS (6)
  - SINUS CONGESTION [None]
  - HEADACHE [None]
  - RESPIRATORY TRACT CONGESTION [None]
  - COUGH [None]
  - MYALGIA [None]
  - NASOPHARYNGITIS [None]
